FAERS Safety Report 4727599-X (Version None)
Quarter: 2005Q3

REPORT INFORMATION
  Report Type: 
  Country: None (occurrence: None)
  Receive Date: 20050727
  Receipt Date: 20050727
  Transmission Date: 20060218
  Serious: Yes (Hospitalization)
  Sender: FDA-Public Use
  Company Number: None

PATIENT
  Age: 58 Year
  Sex: Male

DRUGS (17)
  1. HUMULIN 70/30 [Suspect]
     Indication: DIABETES MELLITUS
     Dosage: 12 U SQ QAM 8U SC QPM
     Route: 058
     Dates: start: 20050527, end: 20050530
  2. CIPROFLOXACIN [Suspect]
     Indication: WOUND INFECTION
     Dosage: 500 MG PO BID
     Route: 048
     Dates: start: 20050527, end: 20050726
  3. AMITRIPTYLINE HCL [Concomitant]
  4. CLONIDINE HCL [Concomitant]
  5. DOCUSATE NA [Concomitant]
  6. EPOETIN ALFA [Concomitant]
  7. FERROUS SULFATE TAB [Concomitant]
  8. FOLIC ACID [Concomitant]
  9. FUROSEMIDE [Concomitant]
  10. METOLAZONE [Concomitant]
  11. METOPROLOL [Concomitant]
  12. MINOXIDIL [Concomitant]
  13. MULTI-VITAMIN [Concomitant]
  14. OMEPRAZOLE [Concomitant]
  15. TERAZOSIN HCL [Concomitant]
  16. THIAMINE HCL [Concomitant]
  17. HUMULIN 70/30 [Concomitant]

REACTIONS (1)
  - BLOOD GLUCOSE DECREASED [None]
